FAERS Safety Report 4454640-4 (Version None)
Quarter: 2004Q3

REPORT INFORMATION
  Report Type: 
  Country: None (occurrence: None)
  Receive Date: 20040826
  Receipt Date: 20040517
  Transmission Date: 20050211
  Serious: Yes (Life-Threatening)
  Sender: FDA-Public Use
  Company Number: 236131

PATIENT
  Age: 45 Year
  Sex: Female
  Weight: 63 kg

DRUGS (10)
  1. NOVOLIN N (INSULIN HUMAN) SUSPENSION FOR INJECTION, 100 IU/ML [Suspect]
     Indication: DIABETES MELLITUS INSULIN-DEPENDENT
     Dosage: SEE IMAGE
     Route: 058
     Dates: start: 20040323, end: 20040324
  2. NOVOLIN N (INSULIN HUMAN) SUSPENSION FOR INJECTION, 100 IU/ML [Suspect]
     Indication: DIABETES MELLITUS INSULIN-DEPENDENT
     Dosage: SEE IMAGE
     Route: 058
     Dates: start: 20040325
  3. HUMULIN R [Concomitant]
  4. PAXIL [Concomitant]
  5. TRAZODONE HCL [Concomitant]
  6. VALIUM [Concomitant]
  7. SEROQUEL [Concomitant]
  8. LASIX [Concomitant]
  9. PRINIVIL [Concomitant]
  10. PERCOCET [Concomitant]

REACTIONS (2)
  - BLOOD GLUCOSE FLUCTUATION [None]
  - HYPOGLYCAEMIC COMA [None]
